FAERS Safety Report 21788802 (Version 1)
Quarter: 2022Q4

REPORT INFORMATION
  Report Type: Spontaneous
  Country: MY (occurrence: MY)
  Receive Date: 20221228
  Receipt Date: 20221228
  Transmission Date: 20230112
  Serious: Yes (Life-Threatening, Hospitalization, Other)
  Sender: FDA-Public Use
  Company Number: MY-PFIZER INC-202201391915

PATIENT
  Age: 74 Year
  Sex: Male

DRUGS (1)
  1. ANIDULAFUNGIN [Suspect]
     Active Substance: ANIDULAFUNGIN
     Indication: Candida infection
     Dosage: UNK

REACTIONS (2)
  - Multiple organ dysfunction syndrome [Unknown]
  - Illness [Unknown]
